FAERS Safety Report 6231978-1 (Version None)
Quarter: 2009Q2

REPORT INFORMATION
  Report Type: 
  Country: None (occurrence: None)
  Receive Date: 20090616
  Receipt Date: 20090604
  Transmission Date: 20091009
  Serious: Yes (Hospitalization, Other)
  Sender: FDA-Public Use
  Company Number: IN-PFIZER INC-2009225200

PATIENT

DRUGS (1)
  1. CHAMPIX [Suspect]
     Indication: SMOKING CESSATION THERAPY
     Dosage: UNIT DOSE: UNKNOWN; FREQUENCY: BLK# 5, UNKNOWN;
     Route: 048
     Dates: start: 20090201

REACTIONS (4)
  - HOMICIDAL IDEATION [None]
  - NAUSEA [None]
  - SUICIDAL IDEATION [None]
  - SUICIDE ATTEMPT [None]
